FAERS Safety Report 16342681 (Version 1)
Quarter: 2019Q2

REPORT INFORMATION
  Report Type: Spontaneous
  Country: US (occurrence: US)
  Receive Date: 20190416
  Receipt Date: 20190416
  Transmission Date: 20190711
  Serious: No
  Sender: FDA-Public Use
  Company Number: None

PATIENT
  Age: 68 Year
  Sex: Male

DRUGS (4)
  1. LUPRON DEPOT [Concomitant]
     Active Substance: LEUPROLIDE ACETATE
  2. LEVITIRACETAM [Concomitant]
     Active Substance: LEVETIRACETAM
  3. PREDNISONE 5 MG TAB WATSON [Suspect]
     Active Substance: PREDNISONE
     Route: 048
     Dates: start: 201903
  4. VITAMIN D [Concomitant]
     Active Substance: VITAMIN D NOS

REACTIONS (1)
  - Hot flush [None]

NARRATIVE: CASE EVENT DATE: 20190416
